FAERS Safety Report 5374296-6 (Version None)
Quarter: 2007Q2

REPORT INFORMATION
  Report Type: 
  Country: None (occurrence: None)
  Receive Date: 20070629
  Receipt Date: 20070419
  Transmission Date: 20071010
  Serious: Yes (Life-Threatening)
  Sender: FDA-Public Use
  Company Number: JP-ROCHE-372390

PATIENT
  Age: 10 Year
  Sex: Male
  Weight: 39 kg

DRUGS (4)
  1. TAMIFLU [Suspect]
     Route: 048
     Dates: start: 20040202, end: 20040202
  2. CALONAL [Concomitant]
     Dosage: DOSAGE REGIMEN: 300 MG IF NEEDED. GENERIC: ACETAMINOPHEN
     Route: 048
     Dates: start: 20040202, end: 20040202
  3. MUCODYNE [Concomitant]
     Route: 048
     Dates: start: 20040202, end: 20040202
  4. ASTHMA [Concomitant]
     Route: 048
     Dates: start: 20040202, end: 20040202

REACTIONS (1)
  - ALTERED STATE OF CONSCIOUSNESS [None]
